FAERS Safety Report 14613999 (Version 1)
Quarter: 2018Q1

REPORT INFORMATION
  Report Type: Spontaneous
  Country: ZA (occurrence: ZA)
  Receive Date: 20180308
  Receipt Date: 20180308
  Transmission Date: 20180509
  Serious: Yes (Hospitalization)
  Sender: FDA-Public Use
  Company Number: ZA-PFIZER INC-2018097090

PATIENT
  Age: 58 Year
  Sex: Male

DRUGS (13)
  1. ECOTRIN [Suspect]
     Active Substance: ASPIRIN
     Dosage: 81 MG, UNK
  2. ADCO ZILDEM [Suspect]
     Active Substance: DILTIAZEM HYDROCHLORIDE
     Dosage: 180 MG, UNK
  3. BILOCOR [Suspect]
     Active Substance: BISOPROLOL FUMARATE
     Dosage: 5 MG, UNK
  4. ADCO MIRTERON [Suspect]
     Active Substance: MIRTAZAPINE
     Dosage: 15 MG, UNK
  5. NEXMEZOL [Suspect]
     Active Substance: ESOMEPRAZOLE MAGNESIUM
     Dosage: 40 MG, UNK
  6. ZOPIVANE [Suspect]
     Active Substance: ZOPICLONE
     Dosage: 7.5 MG, UNK
  7. MONICOR [Suspect]
     Active Substance: ISOSORBIDE MONONITRATE
     Dosage: 60 MG, UNK
  8. ENAP-CO [Suspect]
     Active Substance: ENALAPRIL MALEATE\HYDROCHLOROTHIAZIDE
     Dosage: 20/12.5 MG, UNK
  9. DIAPHAGE [Suspect]
     Active Substance: METFORMIN HYDROCHLORIDE
     Dosage: 850 MG, UNK
  10. INSULIN DEFALAN NOS [Suspect]
     Active Substance: INSULIN DEFALAN (BOVINE)\INSULIN DEFALAN (PORCINE)
     Dosage: 100 IU, UNK
  11. MYLAN QUETIAPINE 300 [Suspect]
     Active Substance: QUETIAPINE
     Dosage: 225 MG, UNK
  12. ASPAVOR [Suspect]
     Active Substance: ATORVASTATIN
     Dosage: 10 MG, UNK
  13. CELEBREX [Suspect]
     Active Substance: CELECOXIB
     Dosage: 200 MG, UNK

REACTIONS (1)
  - Malaise [Unknown]
